FAERS Safety Report 6864860-7 (Version None)
Quarter: 2010Q3

REPORT INFORMATION
  Report Type: 
  Country: None (occurrence: None)
  Receive Date: 20100721
  Receipt Date: 20080408
  Transmission Date: 20110219
  Serious: No
  Sender: FDA-Public Use
  Company Number: US-PFIZER INC-2008031813

PATIENT
  Sex: Female
  Weight: 68.2 kg

DRUGS (8)
  1. CHANTIX [Suspect]
     Indication: SMOKING CESSATION THERAPY
     Dates: start: 20080403
  2. ALENDRONATE SODIUM [Concomitant]
  3. COMBIVENT [Concomitant]
  4. CILOSTAZOL [Concomitant]
  5. CHOLINE MAGNESIUM TRISALICYLATE [Concomitant]
  6. FUROSEMIDE [Concomitant]
  7. POTASSIUM CHLORIDE [Concomitant]
  8. KLONOPIN [Concomitant]

REACTIONS (1)
  - SOMNOLENCE [None]
